FAERS Safety Report 9418239 (Version 1)
Quarter: 2013Q3

REPORT INFORMATION
  Report Type: Spontaneous
  Country: BE (occurrence: BE)
  Receive Date: 20130724
  Receipt Date: 20130724
  Transmission Date: 20140515
  Serious: Yes (Death)
  Sender: FDA-Public Use
  Company Number: BE-ALEXION PHARMACEUTICALS INC.-A201301672

PATIENT
  Age: 9 Year
  Sex: Female

DRUGS (3)
  1. SOLIRIS 300MG [Suspect]
     Indication: HAEMOLYTIC URAEMIC SYNDROME
     Dosage: 600 MG, QW
     Route: 042
     Dates: start: 20130711
  2. CLAFORAN [Concomitant]
     Indication: BACTERAEMIA
     Dosage: 1500 MG, QD
     Route: 042
     Dates: start: 20130710, end: 20130713
  3. SODIUM BICARBONATE [Concomitant]
     Indication: METABOLIC ACIDOSIS
     Dosage: 120 MEQ, QD
     Dates: start: 20130710, end: 20130713

REACTIONS (1)
  - Cardiac arrest [Fatal]
